FAERS Safety Report 8538624-2 (Version None)
Quarter: 2012Q3

REPORT INFORMATION
  Report Type: 
  Country: None (occurrence: None)
  Receive Date: 20120718
  Receipt Date: 20120718
  Transmission Date: 20120928
  Serious: Yes (Disabling, Other)
  Sender: FDA-Public Use
  Company Number: None

PATIENT
  Age: 41 Year
  Sex: Male
  Weight: 90.7194 kg

DRUGS (1)
  1. CHANTIX [Suspect]
     Indication: SMOKING CESSATION THERAPY
     Dosage: 1.0 2X DAILY
     Dates: start: 20120421, end: 20120621

REACTIONS (5)
  - SUICIDAL IDEATION [None]
  - THINKING ABNORMAL [None]
  - MAJOR DEPRESSION [None]
  - ANXIETY [None]
  - ANGER [None]
